FAERS Safety Report 6878425-4 (Version None)
Quarter: 2010Q3

REPORT INFORMATION
  Report Type: 
  Country: None (occurrence: None)
  Receive Date: 20100728
  Receipt Date: 20100607
  Transmission Date: 20110219
  Serious: Yes (Hospitalization, Disabling)
  Sender: FDA-Public Use
  Company Number: DE-SANOFI-AVENTIS-2010SA032752

PATIENT
  Sex: Male

DRUGS (10)
  1. SABRIL [Interacting]
     Route: 048
     Dates: start: 20100605
  2. SABRIL [Interacting]
     Route: 048
     Dates: start: 20100101, end: 20100101
  3. SABRIL [Interacting]
     Route: 048
     Dates: start: 20100101
  4. VALPROATE SODIUM [Interacting]
     Route: 065
     Dates: end: 20100101
  5. VALPROATE SODIUM [Interacting]
     Route: 065
     Dates: start: 20100101
  6. LASIX [Suspect]
     Indication: BRONCHOPULMONARY DYSPLASIA
     Route: 048
  7. LAMOTRIGINE [Interacting]
     Route: 048
     Dates: end: 20100101
  8. LAMOTRIGINE [Interacting]
     Route: 048
     Dates: start: 20100101
  9. OSPOLOT [Interacting]
     Route: 048
  10. FERRO ^SANOL^ [Interacting]
     Indication: PRODUCT USED FOR UNKNOWN INDICATION
     Route: 065

REACTIONS (6)
  - BLOOD CREATINE PHOSPHOKINASE INCREASED [None]
  - BLOOD LACTATE DEHYDROGENASE INCREASED [None]
  - DRUG INTERACTION [None]
  - HYPERTHERMIA MALIGNANT [None]
  - RESTLESSNESS [None]
  - RHABDOMYOLYSIS [None]
